FAERS Safety Report 16551412 (Version 2)
Quarter: 2020Q2

REPORT INFORMATION
  Report Type: Spontaneous
  Country: US (occurrence: US)
  Receive Date: 20190710
  Receipt Date: 20200414
  Transmission Date: 20200713
  Serious: Yes (Other)
  Sender: FDA-Public Use
  Company Number: US-GILEAD-2019-0417405

PATIENT
  Age: 40 Year
  Sex: Male
  Weight: 70.91 kg

DRUGS (36)
  1. MIRALAX [Concomitant]
     Active Substance: POLYETHYLENE GLYCOL 3350
  2. MS CONTIN [Concomitant]
     Active Substance: MORPHINE SULFATE
  3. EPZICOM [Concomitant]
     Active Substance: ABACAVIR SULFATE\LAMIVUDINE
  4. VALTREX [Concomitant]
     Active Substance: VALACYCLOVIR HYDROCHLORIDE
  5. CHANTIX [Concomitant]
     Active Substance: VARENICLINE TARTRATE
  6. KLOR-CON [Concomitant]
     Active Substance: POTASSIUM CHLORIDE
  7. NORCO [Concomitant]
     Active Substance: ACETAMINOPHEN\HYDROCODONE BITARTRATE
  8. TRAZODONE HYDROCHLORIDE. [Concomitant]
     Active Substance: TRAZODONE HYDROCHLORIDE
  9. INFLUENZA VACCINE [Concomitant]
     Active Substance: INFLUENZA VIRUS VACCINE
  10. DIAZEPAM. [Concomitant]
     Active Substance: DIAZEPAM
  11. BUSPIRONE [Concomitant]
     Active Substance: BUSPIRONE HYDROCHLORIDE
  12. AMOXICILLIN + CLAV. POTASSIUM [Concomitant]
     Active Substance: AMOXICILLIN\CLAVULANATE POTASSIUM
  13. TRAMADOL. [Concomitant]
     Active Substance: TRAMADOL
  14. TIVICAY [Concomitant]
     Active Substance: DOLUTEGRAVIR SODIUM
  15. EPIVIR [Concomitant]
     Active Substance: LAMIVUDINE
  16. DEPO-TESTOSTERONE [Concomitant]
     Active Substance: TESTOSTERONE CYPIONATE
  17. OXYBUTYNIN CHLORIDE. [Concomitant]
     Active Substance: OXYBUTYNIN CHLORIDE
  18. STRIBILD [Suspect]
     Active Substance: COBICISTAT\ELVITEGRAVIR\EMTRICITABINE\TENOFOVIR DISOPROXIL FUMARATE
     Indication: HIV INFECTION
     Dosage: UNK
     Route: 048
     Dates: start: 201401, end: 201509
  19. ATRIPLA [Suspect]
     Active Substance: EFAVIRENZ\EMTRICITABINE\TENOFOVIR DISOPROXIL FUMARATE
     Indication: HIV INFECTION
     Dosage: UNK
     Route: 065
     Dates: start: 2010, end: 201401
  20. GENVOYA [Concomitant]
     Active Substance: COBICISTAT\ELVITEGRAVIR\EMTRICITABINE\TENOFOVIR ALAFENAMIDE FUMARATE
  21. OXYCONTIN [Concomitant]
     Active Substance: OXYCODONE HYDROCHLORIDE
  22. OXYCODONE HYDROCHLORIDE. [Concomitant]
     Active Substance: OXYCODONE HYDROCHLORIDE
  23. ZOSYN [Concomitant]
     Active Substance: PIPERACILLIN SODIUM\TAZOBACTAM SODIUM
  24. BUDESONIDE ALMUS [Concomitant]
  25. VOGELXO [Concomitant]
     Active Substance: TESTOSTERONE
  26. VITAMIN D2 [Concomitant]
     Active Substance: ERGOCALCIFEROL
  27. COLACE [Concomitant]
     Active Substance: DOCUSATE SODIUM
  28. PROAIR HFA [Concomitant]
     Active Substance: ALBUTEROL SULFATE
  29. ABACAVIR SULFATE. [Concomitant]
     Active Substance: ABACAVIR SULFATE
  30. AMLODIPINE BESYLATE. [Concomitant]
     Active Substance: AMLODIPINE BESYLATE
  31. TRUVADA [Suspect]
     Active Substance: EMTRICITABINE\TENOFOVIR DISOPROXIL FUMARATE
     Indication: HIV INFECTION
     Dosage: UNK
     Route: 065
     Dates: start: 201509, end: 201601
  32. TESTOSTERONE CYPIONATE. [Concomitant]
     Active Substance: TESTOSTERONE CYPIONATE
  33. MIRTAZAPINE. [Concomitant]
     Active Substance: MIRTAZAPINE
  34. TRIUMEQ [Concomitant]
     Active Substance: ABACAVIR SULFATE\DOLUTEGRAVIR SODIUM\LAMIVUDINE
  35. MORPHINE SULFATE PDRX [Concomitant]
  36. REMERON [Concomitant]
     Active Substance: MIRTAZAPINE

REACTIONS (10)
  - Acute kidney injury [Not Recovered/Not Resolved]
  - Anxiety [Unknown]
  - Renal tubular necrosis [Not Recovered/Not Resolved]
  - Chronic kidney disease [Not Recovered/Not Resolved]
  - Osteonecrosis [Not Recovered/Not Resolved]
  - Injury [Unknown]
  - Pain [Unknown]
  - Emotional distress [Unknown]
  - Anhedonia [Unknown]
  - Economic problem [Unknown]

NARRATIVE: CASE EVENT DATE: 201509
